FAERS Safety Report 24048392 (Version 2)
Quarter: 2024Q3

REPORT INFORMATION
  Report Type: Spontaneous
  Country: EG (occurrence: EG)
  Receive Date: 20240704
  Receipt Date: 20240725
  Transmission Date: 20241016
  Serious: Yes (Death, Other)
  Sender: NOVO NORDISK
  Company Number: EG-NOVOPROD-1244646

PATIENT
  Age: 2 Day

DRUGS (3)
  1. NOVORAPID [Suspect]
     Active Substance: INSULIN ASPART
     Indication: Type 1 diabetes mellitus
     Dosage: (10 U,10U AND 7 U) BEFORE EACH MEAL
     Route: 064
  2. NOVORAPID [Suspect]
     Active Substance: INSULIN ASPART
     Dosage: 17 IU, QD (07+07+03 IU PER MAIN MEAL RESPECTIVELY)
     Route: 064
  3. LEVOTHYROXINE [Concomitant]
     Active Substance: LEVOTHYROXINE\LEVOTHYROXINE SODIUM
     Dosage: UNK

REACTIONS (2)
  - Sepsis neonatal [Fatal]
  - Foetal exposure during pregnancy [Recovered/Resolved]

NARRATIVE: CASE EVENT DATE: 20180723
